FAERS Safety Report 4925237-4 (Version None)
Quarter: 2006Q1

REPORT INFORMATION
  Report Type: 
  Country: None (occurrence: None)
  Receive Date: 20060228
  Receipt Date: 20060214
  Transmission Date: 20060701
  Serious: Yes (Other)
  Sender: FDA-Public Use
  Company Number: PHBS2006JP02552

PATIENT
  Age: 70 Year
  Sex: Male

DRUGS (3)
  1. AREDIA [Suspect]
     Indication: MULTIPLE MYELOMA
     Dosage: 45 MG EVERY 2 WEEKS
     Route: 042
     Dates: start: 20031101, end: 20051201
  2. DEXAMETHASONE SODIUM PHOSPHATE [Concomitant]
     Route: 048
     Dates: start: 20031101, end: 20060101
  3. THALIDOMIDE [Concomitant]
     Dosage: 200MG/DAY
     Dates: start: 20031101, end: 20060101

REACTIONS (3)
  - ORAL PAIN [None]
  - OSTEONECROSIS [None]
  - TOOTH ABSCESS [None]
